FAERS Safety Report 6529473-5 (Version None)
Quarter: 2009Q4

REPORT INFORMATION
  Report Type: 
  Country: None (occurrence: None)
  Receive Date: 20091231
  Receipt Date: 20091218
  Transmission Date: 20100525
  Serious: Yes (Life-Threatening)
  Sender: FDA-Public Use
  Company Number: 2009AL007954

PATIENT
  Age: 43 Year
  Sex: Male

DRUGS (5)
  1. LIDOCAINE HYDROCHLORIDE 2% [Suspect]
     Indication: LOCAL ANAESTHESIA
     Dosage: 10 MG;X1;SC
     Route: 058
     Dates: start: 20070314, end: 20070314
  2. MELOXICAM [Concomitant]
  3. CO-CODAMOL [Concomitant]
  4. PREGABALIN [Concomitant]
  5. OMEPRAZOLE [Concomitant]

REACTIONS (8)
  - AGITATION [None]
  - DIZZINESS [None]
  - HYPERHIDROSIS [None]
  - MALAISE [None]
  - PALLOR [None]
  - PARAESTHESIA [None]
  - PULSE ABSENT [None]
  - RESTLESSNESS [None]
